FAERS Safety Report 21727995 (Version 1)
Quarter: 2022Q4

REPORT INFORMATION
  Report Type: Spontaneous
  Country: JP (occurrence: JP)
  Receive Date: 20221214
  Receipt Date: 20221214
  Transmission Date: 20230112
  Serious: Yes (Other)
  Sender: FDA-Public Use
  Company Number: JP-BAYER-2022A166290

PATIENT
  Age: 58 Year
  Sex: Male

DRUGS (1)
  1. NEXAVAR [Suspect]
     Active Substance: SORAFENIB
     Indication: Papillary thyroid cancer
     Dates: start: 20220323

REACTIONS (4)
  - Infectious pleural effusion [None]
  - Pyrexia [None]
  - Dyspnoea [None]
  - Pneumothorax [None]

NARRATIVE: CASE EVENT DATE: 20220101
